FAERS Safety Report 11867256 (Version 1)
Quarter: 2015Q4

REPORT INFORMATION
  Report Type: Spontaneous
  Country: US (occurrence: US)
  Receive Date: 20151224
  Receipt Date: 20151224
  Transmission Date: 20160305
  Serious: Yes (Disabling)
  Sender: FDA-Public Use
  Company Number: US-ASTRAZENECA-2012SE74514

PATIENT
  Age: 53 Year
  Sex: Female
  Weight: 78 kg

DRUGS (21)
  1. CRESTOR [Suspect]
     Active Substance: ROSUVASTATIN CALCIUM
     Indication: BLOOD CHOLESTEROL INCREASED
     Route: 048
     Dates: start: 2008
  2. ASPIRIN. [Concomitant]
     Active Substance: ASPIRIN
     Dates: start: 20090122
  3. TRILIPIX [Concomitant]
     Active Substance: FENOFIBRIC ACID
     Dates: start: 20100109
  4. PREMARIN [Concomitant]
     Active Substance: ESTROGENS, CONJUGATED
     Dates: start: 20101018
  5. ATELVIA [Concomitant]
     Active Substance: RISEDRONATE SODIUM
     Dates: start: 20111108
  6. CRESTOR [Suspect]
     Active Substance: ROSUVASTATIN CALCIUM
     Indication: BLOOD CHOLESTEROL INCREASED
     Route: 048
     Dates: start: 20090122
  7. WELLBUTRIN XL [Concomitant]
     Active Substance: BUPROPION HYDROCHLORIDE
     Dates: start: 20090122
  8. ACETAMINOPHENE [Concomitant]
     Dates: start: 20090122
  9. AVANDAMET [Concomitant]
     Active Substance: METFORMIN HYDROCHLORIDE\ROSIGLITAZONE MALEATE
     Dosage: 4-500 MG
     Dates: start: 20091217
  10. SUDOGEST [Concomitant]
     Active Substance: PSEUDOEPHEDRINE HYDROCHLORIDE
     Dates: start: 20120416
  11. BONIVA [Concomitant]
     Active Substance: IBANDRONATE SODIUM
     Dates: start: 20090122
  12. VESICARE [Concomitant]
     Active Substance: SOLIFENACIN SUCCINATE
     Dates: start: 20091125
  13. ABILIFY [Concomitant]
     Active Substance: ARIPIPRAZOLE
     Dates: start: 20090122
  14. AZITHROMYCIN [Concomitant]
     Active Substance: AZITHROMYCIN ANHYDROUS
     Dates: start: 20121217
  15. NAPROXEN. [Concomitant]
     Active Substance: NAPROXEN
     Dates: start: 20120416
  16. TOPROL XL [Concomitant]
     Active Substance: METOPROLOL SUCCINATE
     Dates: start: 20090122
  17. ACTOPLUS MET [Concomitant]
     Active Substance: METFORMIN HYDROCHLORIDE\PIOGLITAZONE HYDROCHLORIDE
     Dosage: 15-500 MG
     Dates: start: 20110224
  18. VICTOZA [Concomitant]
     Active Substance: LIRAGLUTIDE
     Dosage: 6MG/ML
     Dates: start: 20110712
  19. TRICOR [Concomitant]
     Active Substance: FENOFIBRATE
     Dates: start: 20090122
  20. FERROUS SULFATE [Concomitant]
     Active Substance: FERROUS SULFATE\FERROUS SULFATE, DRIED
     Dates: start: 20090122
  21. OYSTER SHELL [Concomitant]
     Active Substance: OSTREA EDULIS SHELL
     Dates: start: 20090122

REACTIONS (4)
  - Stress [Not Recovered/Not Resolved]
  - Depression [Not Recovered/Not Resolved]
  - Hypertension [Not Recovered/Not Resolved]
  - Type 2 diabetes mellitus [Not Recovered/Not Resolved]

NARRATIVE: CASE EVENT DATE: 2008
